FAERS Safety Report 7406662 (Version 2)
Quarter: 2014Q1

REPORT INFORMATION
  Report Type: Spontaneous
  Country: US (occurrence: None)
  Receive Date: 20100513
  Receipt Date: 20140124
  Transmission Date: 20141002
  Serious: Yes (Other)
  Sender: FDA-Public Use
  Company Number: 2010S1002644

PATIENT
  Sex: Male
  Weight: 85.28 kg

DRUGS (17)
  1. FLEET PHOSPHO-SODA ORAL SALINE LAXATIVE, GINGER-LEMON FLAVOR (ORAL SOLUTION) [Suspect]
     Dosage: ; PO
     Route: 048
  2. TENORMIN (ATENOLOL) [Concomitant]
     Indication: COLONOSCOPY
     Dosage: ; PO
  3. MEVACOR (LOVASTATIN) [Concomitant]
  4. ACCUPRIL (QUINAPRIL HYDROCHLORIDE) [Concomitant]
  5. ALLOPURINOL (ALLOPURINOL) [Concomitant]
  6. COLCHICINE (COLCHICINE) [Concomitant]
  7. HYDROCHLOROTHIAZIDE (HYDROCHLOROTHIAZIDE) [Concomitant]
  8. PROSCAR (FINASTERIDE) [Concomitant]
  9. CARTIA (DILTIAZEM HYDROCHLORIDE) [Concomitant]
  10. ZETIA (EZETIMIBE) [Concomitant]
  11. INDAPAMIDE (INDAPAMIDE) [Concomitant]
  12. PRILOSEC (OMEPRAZOLE) [Concomitant]
  13. LISINOPRIL (LISINOPRIL) [Concomitant]
  14. PLAVIX (CLOPIDOGREL BISULFATE) (CLOPIDOGREL BISULFATE) [Concomitant]
  15. VYTORIN (SIMVASTATIN, EZETIMIBE) [Concomitant]
  16. TERAZOSIN (TERAZOSIN) (TERAZOSIN) [Concomitant]
  17. TRAMADOL (TRAMADOL) [Concomitant]

REACTIONS (1)
  - Renal impairment [None]
